FAERS Safety Report 6094391-6 (Version None)
Quarter: 2009Q1

REPORT INFORMATION
  Report Type: 
  Country: None (occurrence: None)
  Receive Date: 20090226
  Receipt Date: 20090217
  Transmission Date: 20090719
  Serious: Yes (Death)
  Sender: FDA-Public Use
  Company Number: US-ELI_LILLY_AND_COMPANY-US200902004185

PATIENT
  Sex: Male

DRUGS (6)
  1. CYMBALTA [Suspect]
     Indication: DEPRESSION
     Dosage: 30 MG, DAILY (1/D)
     Dates: start: 20060101
  2. CYMBALTA [Suspect]
     Dosage: 60 MG, DAILY (1/D)
  3. CYMBALTA [Suspect]
     Dosage: 30 MG, DAILY (1/D)
  4. WARFARIN [Concomitant]
  5. ATIVAN [Concomitant]
  6. MIRTAZAPINE [Concomitant]

REACTIONS (4)
  - CONTUSION [None]
  - DEATH [None]
  - FALL [None]
  - INTERNATIONAL NORMALISED RATIO INCREASED [None]
